FAERS Safety Report 4474742-6 (Version None)
Quarter: 2004Q3

REPORT INFORMATION
  Report Type: 
  Country: None (occurrence: None)
  Receive Date: 20040923
  Receipt Date: 20040720
  Transmission Date: 20050211
  Serious: No
  Sender: FDA-Public Use
  Company Number: USA040671477

PATIENT
  Age: 77 Year
  Sex: Female

DRUGS (8)
  1. FORTEO [Suspect]
     Indication: OSTEOPOROSIS
     Dates: start: 20040119
  2. CALCIUM CARBONATE [Concomitant]
  3. MULTIVITAMIN [Concomitant]
  4. PAXIL [Concomitant]
  5. BEXTRA [Concomitant]
  6. OXAZEPAM [Concomitant]
  7. VITAMIN B-12 [Concomitant]
  8. VIMTAIN E [Concomitant]

REACTIONS (4)
  - ARTHRALGIA [None]
  - BACK PAIN [None]
  - INJECTION SITE HAEMORRHAGE [None]
  - INJECTION SITE PAIN [None]
